FAERS Safety Report 18432713 (Version 3)
Quarter: 2020Q4

REPORT INFORMATION
  Report Type: Report from Study
  Country: CN (occurrence: CN)
  Receive Date: 20201027
  Receipt Date: 20201126
  Transmission Date: 20210114
  Serious: Yes (Other)
  Sender: FDA-Public Use
  Company Number: NVSC2020CN285902

PATIENT
  Age: 65 Year
  Sex: Male

DRUGS (14)
  1. COIX SPP. SEED [Concomitant]
     Indication: METASTATIC RENAL CELL CARCINOMA
     Dosage: 20 G
     Route: 050
     Dates: start: 20200629, end: 20200704
  2. VOTRIENT [Suspect]
     Active Substance: PAZOPANIB HYDROCHLORIDE
     Indication: METASTATIC RENAL CELL CARCINOMA
     Dosage: 800 MG
     Route: 048
     Dates: start: 20200630, end: 20200725
  3. CANTHARIDES [Concomitant]
     Active Substance: HOMEOPATHICS\LYTTA VESICATORIA
     Indication: METASTATIC RENAL CELL CARCINOMA
     Dosage: 0.75 G
     Route: 065
     Dates: start: 20200619, end: 20200630
  4. CANTHARIDES [Concomitant]
     Active Substance: HOMEOPATHICS\LYTTA VESICATORIA
     Dosage: 0.75 UNK
     Route: 065
     Dates: start: 20200917
  5. CURCUMA ZEDOARIA [Concomitant]
     Active Substance: HERBALS
     Indication: METASTATIC RENAL CELL CARCINOMA
     Dosage: 15 G
     Route: 050
     Dates: start: 20200629, end: 20200704
  6. TAKUS [Concomitant]
     Indication: METASTATIC RENAL CELL CARCINOMA
     Dosage: 1 UNK (1 SACK)
     Route: 050
     Dates: start: 20200629, end: 20200704
  7. VOTRIENT [Suspect]
     Active Substance: PAZOPANIB HYDROCHLORIDE
     Dosage: 800 MG
     Route: 048
     Dates: start: 20200727, end: 20200827
  8. AKEBIA SPP. [Concomitant]
     Indication: METASTATIC RENAL CELL CARCINOMA
     Dosage: 15 G
     Route: 050
     Dates: start: 20200629, end: 20200704
  9. LEVAMLODIPINE MALEATE. [Concomitant]
     Active Substance: LEVAMLODIPINE MALEATE
     Indication: PRODUCT USED FOR UNKNOWN INDICATION
     Dosage: 1 DF
     Route: 048
     Dates: start: 2017
  10. GANODERMA LUCIDUM [Concomitant]
     Indication: METASTATIC RENAL CELL CARCINOMA
     Dosage: 10 G
     Route: 050
     Dates: start: 20200629, end: 20200704
  11. LIQUORICE [Concomitant]
     Active Substance: LICORICE
     Indication: METASTATIC RENAL CELL CARCINOMA
     Dosage: 10 G
     Route: 050
     Dates: start: 20200629, end: 20200704
  12. VOTRIENT [Suspect]
     Active Substance: PAZOPANIB HYDROCHLORIDE
     Dosage: 800 MG
     Route: 048
     Dates: start: 20200830
  13. TULIP [Concomitant]
     Indication: METASTATIC RENAL CELL CARCINOMA
     Dosage: 15 G
     Route: 065
     Dates: start: 20200629, end: 20200704
  14. CORYDALIS SPP. TUBE [Concomitant]
     Indication: METASTATIC RENAL CELL CARCINOMA
     Dosage: 15 G
     Route: 050
     Dates: start: 20200629, end: 20200704

REACTIONS (9)
  - Haematochezia [Recovered/Resolved]
  - Rash [Recovering/Resolving]
  - Asthenia [Recovered/Resolved]
  - Vomiting [Recovered/Resolved]
  - Nausea [Recovered/Resolved]
  - Diarrhoea [Recovered/Resolved]
  - Marasmus [Recovering/Resolving]
  - Pyrexia [Recovered/Resolved]
  - Vomiting [Recovered/Resolved]

NARRATIVE: CASE EVENT DATE: 20200701
